FAERS Safety Report 17257016 (Version 1)
Quarter: 2020Q1

REPORT INFORMATION
  Report Type: Spontaneous
  Country: US (occurrence: US)
  Receive Date: 20200109
  Receipt Date: 20200109
  Transmission Date: 20200409
  Serious: Yes (Other)
  Sender: FDA-Public Use
  Company Number: None

PATIENT
  Age: 38 Year
  Sex: Female
  Weight: 56.25 kg

DRUGS (3)
  1. MULTIVITAMIN [Concomitant]
     Active Substance: VITAMINS
  2. ALBUTEROL INHALER [Concomitant]
     Active Substance: ALBUTEROL
  3. PARAGARD T 380A [Suspect]
     Active Substance: COPPER

REACTIONS (8)
  - Menorrhagia [None]
  - Vaginal discharge [None]
  - Pain [None]
  - Cystitis [None]
  - Discomfort [None]
  - Infection [None]
  - Migraine [None]
  - Urinary tract infection [None]

NARRATIVE: CASE EVENT DATE: 20150314
